FAERS Safety Report 18628797 (Version 3)
Quarter: 2024Q2

REPORT INFORMATION
  Report Type: Spontaneous
  Country: US (occurrence: US)
  Receive Date: 20201217
  Receipt Date: 20240422
  Transmission Date: 20240715
  Serious: Yes (Other)
  Sender: FDA-Public Use
  Company Number: US-PFIZER INC-2020497098

PATIENT
  Age: 70 Year
  Sex: Female

DRUGS (2)
  1. XELJANZ [Suspect]
     Active Substance: TOFACITINIB CITRATE
     Indication: Rheumatoid arthritis
     Dosage: 5 MG, 2X/DAY
     Route: 048
     Dates: start: 202011
  2. ACETAMINOPHEN\HYDROCODONE [Concomitant]
     Active Substance: ACETAMINOPHEN\HYDROCODONE
     Indication: Rheumatoid arthritis

REACTIONS (8)
  - Shoulder fracture [Unknown]
  - Hip arthroplasty [Unknown]
  - Upper limb fracture [Unknown]
  - Nausea [Unknown]
  - Diarrhoea [Unknown]
  - Pruritus [Unknown]
  - Abdominal discomfort [Unknown]
  - Contusion [Unknown]

NARRATIVE: CASE EVENT DATE: 20240101
